FAERS Safety Report 24543569 (Version 1)
Quarter: 2024Q4

REPORT INFORMATION
  Report Type: Spontaneous
  Country: NL (occurrence: NL)
  Receive Date: 20241024
  Receipt Date: 20241024
  Transmission Date: 20250114
  Serious: Yes (Other)
  Sender: RANBAXY
  Company Number: NL-SUN PHARMACEUTICAL INDUSTRIES LTD-2024R1-474992

PATIENT
  Age: 53 Year
  Sex: Female

DRUGS (4)
  1. LIDOCAINE [Suspect]
     Active Substance: LIDOCAINE
     Indication: Prophylaxis
     Dosage: (0.5 ML OF 2%)
     Route: 065
  2. SODIUM CHLORIDE [Suspect]
     Active Substance: SODIUM CHLORIDE
     Indication: Prophylaxis
     Dosage: UNK
     Route: 065
  3. EPINEPHRINE [Suspect]
     Active Substance: EPINEPHRINE
     Indication: Prophylaxis
     Dosage: UNK
     Route: 065
  4. TRIBASIC CALCIUM PHOSPHATE [Suspect]
     Active Substance: TRIBASIC CALCIUM PHOSPHATE
     Indication: Prophylaxis
     Dosage: UNK
     Route: 065

REACTIONS (4)
  - Vascular occlusion [Recovering/Resolving]
  - Segmented hyalinising vasculitis [Unknown]
  - Dizziness [Unknown]
  - Vertigo [Recovering/Resolving]
